FAERS Safety Report 12651461 (Version 3)
Quarter: 2016Q4

REPORT INFORMATION
  Report Type: Spontaneous
  Country: BR (occurrence: BR)
  Receive Date: 20160815
  Receipt Date: 20161121
  Transmission Date: 20170207
  Serious: Yes (Death)
  Sender: FDA-Public Use
  Company Number: BR-ORION CORPORATION ORION PHARMA-ENTC2016-0452

PATIENT
  Sex: Male

DRUGS (2)
  1. STALEVO [Suspect]
     Active Substance: CARBIDOPA\ENTACAPONE\LEVODOPA
     Indication: PARKINSON^S DISEASE
  2. STALEVO [Suspect]
     Active Substance: CARBIDOPA\ENTACAPONE\LEVODOPA
     Indication: DEMENTIA ALZHEIMER^S TYPE
     Dosage: STRENGTH: 100 MG (3 BOXES/MONTH WITH 30 TABLETS EACH)
     Route: 048
     Dates: start: 201505, end: 201607

REACTIONS (2)
  - Product use issue [Unknown]
  - Cardiac disorder [Fatal]
